FAERS Safety Report 9646265 (Version 4)
Quarter: 2015Q4

REPORT INFORMATION
  Report Type: Spontaneous
  Country: US (occurrence: US)
  Receive Date: 20131025
  Receipt Date: 20151217
  Transmission Date: 20160305
  Serious: Yes (Death, Other)
  Sender: FDA-Public Use
  Company Number: US-NAPPMUNDI-USA-2013-0105348

PATIENT
  Age: 24 Year
  Sex: Female
  Weight: 87.98 kg

DRUGS (17)
  1. PHENERGAN [Suspect]
     Active Substance: PROMETHAZINE HYDROCHLORIDE
     Dosage: 25 SUPP., UNK
     Route: 054
     Dates: start: 20110225
  2. ZOLOFT [Suspect]
     Active Substance: SERTRALINE HYDROCHLORIDE
     Indication: ANXIETY
  3. FENTANYL. [Suspect]
     Active Substance: FENTANYL
     Indication: ABDOMINAL PAIN UPPER
     Dosage: 25 MCG, Q72H
     Route: 062
     Dates: start: 20110225
  4. VICODIN [Suspect]
     Active Substance: ACETAMINOPHEN\HYDROCODONE BITARTRATE
     Indication: PRODUCT USED FOR UNKNOWN INDICATION
  5. PHENERGAN [Suspect]
     Active Substance: PROMETHAZINE HYDROCHLORIDE
     Indication: ANXIETY
     Dosage: 25 MG, UNK
     Route: 048
     Dates: start: 20110225, end: 20120227
  6. ABILIFY [Suspect]
     Active Substance: ARIPIPRAZOLE
     Indication: PRODUCT USED FOR UNKNOWN INDICATION
  7. KLONOPIN [Suspect]
     Active Substance: CLONAZEPAM
     Indication: ANXIETY
     Dosage: 2 MG, UNK
     Route: 048
     Dates: start: 20110328
  8. KLONOPIN [Suspect]
     Active Substance: CLONAZEPAM
     Dosage: 1 UNK, UNK
     Route: 048
     Dates: start: 20110531
  9. ATIVAN [Suspect]
     Active Substance: LORAZEPAM
     Indication: ANXIETY
  10. TORADOL [Suspect]
     Active Substance: KETOROLAC TROMETHAMINE
     Indication: ABDOMINAL PAIN UPPER
     Dosage: UNK
     Route: 051
     Dates: start: 20110915
  11. DIAZEPAM. [Suspect]
     Active Substance: DIAZEPAM
     Indication: PRODUCT USED FOR UNKNOWN INDICATION
     Dosage: UNK, UNK
     Route: 065
  12. ALCOHOL. [Suspect]
     Active Substance: ALCOHOL
     Indication: SUBSTANCE ABUSE
     Route: 048
  13. CYMBALTA [Suspect]
     Active Substance: DULOXETINE HYDROCHLORIDE
     Indication: ANXIETY
     Dosage: 60 MG, UNK
     Route: 048
     Dates: start: 20110225
  14. DILAUDID [Suspect]
     Active Substance: HYDROMORPHONE HYDROCHLORIDE
     Indication: ABDOMINAL PAIN UPPER
     Dosage: 4 MG, Q3- 4H
     Route: 048
     Dates: start: 20110225
  15. XANAX [Suspect]
     Active Substance: ALPRAZOLAM
     Indication: PRODUCT USED FOR UNKNOWN INDICATION
     Dosage: UNKNOWN
     Route: 065
  16. KLONOPIN [Suspect]
     Active Substance: CLONAZEPAM
     Dosage: 2 MG, TID PRN
     Route: 048
     Dates: start: 20110225
  17. BOTOX [Concomitant]
     Active Substance: ONABOTULINUMTOXINA
     Indication: PRODUCT USED FOR UNKNOWN INDICATION
     Route: 051

REACTIONS (14)
  - Pain [Unknown]
  - Overdose [Fatal]
  - Blood pressure increased [Unknown]
  - Drug intolerance [Unknown]
  - Vomiting [Unknown]
  - Abnormal behaviour [Unknown]
  - Nausea [Unknown]
  - Respiratory failure [Unknown]
  - Drug dependence [Unknown]
  - Substance abuse [Unknown]
  - Chest discomfort [Unknown]
  - Gastrooesophageal reflux disease [Unknown]
  - Hallucination [Unknown]
  - Gastritis [Unknown]

NARRATIVE: CASE EVENT DATE: 20110227
